FAERS Safety Report 9915858 (Version 1)
Quarter: 2014Q1

REPORT INFORMATION
  Report Type: Spontaneous
  Country: US (occurrence: None)
  Receive Date: 20140218
  Receipt Date: 20140218
  Transmission Date: 20141002
  Serious: Yes (Other)
  Sender: FDA-Public Use
  Company Number: AUR-APL-2014-01647

PATIENT
  Age: 45 Year
  Sex: Male

DRUGS (2)
  1. QUETIAPINE [Suspect]
     Indication: INSOMNIA
     Dosage: (50 MG), ORAL
     Route: 048
  2. ZOLPIDEM (ZOLPIDEM) [Concomitant]

REACTIONS (6)
  - Irritability [None]
  - Sleep disorder [None]
  - Dysphoria [None]
  - Feeling abnormal [None]
  - Drug withdrawal syndrome [None]
  - Drug dependence [None]
